FAERS Safety Report 5106335-1 (Version None)
Quarter: 2006Q3

REPORT INFORMATION
  Report Type: 
  Country: None (occurrence: None)
  Receive Date: 20060918
  Receipt Date: 20060911
  Transmission Date: 20061208
  Serious: Yes (Other)
  Sender: FDA-Public Use
  Company Number: NL-BRISTOL-MYERS SQUIBB COMPANY-13505029

PATIENT
  Age: 53 Year
  Sex: Male

DRUGS (3)
  1. CISPLATIN [Suspect]
     Indication: LUNG NEOPLASM MALIGNANT
  2. BORTEZOMIB [Suspect]
     Indication: LUNG NEOPLASM MALIGNANT
  3. GEMCITABINE [Suspect]
     Indication: LUNG NEOPLASM MALIGNANT

REACTIONS (1)
  - CARDIAC FAILURE CONGESTIVE [None]
